FAERS Safety Report 23188591 (Version 1)
Quarter: 2023Q4

REPORT INFORMATION
  Report Type: Spontaneous
  Country: US (occurrence: US)
  Receive Date: 20231115
  Receipt Date: 20231115
  Transmission Date: 20240109
  Serious: No
  Sender: FDA-Public Use
  Company Number: US-PFIZER INC-202300362037

PATIENT
  Age: 23 Year
  Sex: Female

DRUGS (2)
  1. OXBRYTA [Suspect]
     Active Substance: VOXELOTOR
     Dosage: 2 TABLETS ONCE DAILY
     Route: 048
  2. OXBRYTA [Suspect]
     Active Substance: VOXELOTOR
     Dosage: 1 TABLET ONCE DAILY
     Route: 048

REACTIONS (2)
  - Gastrointestinal tract irritation [Unknown]
  - Off label use [Unknown]
